FAERS Safety Report 8090178-3 (Version None)
Quarter: 2012Q1

REPORT INFORMATION
  Report Type: 
  Country: None (occurrence: None)
  Receive Date: 20120129
  Receipt Date: 20111018
  Transmission Date: 20120608
  Serious: No
  Sender: FDA-Public Use
  Company Number: US-ABBOTT-11P-163-0867500-00

PATIENT
  Sex: Female
  Weight: 81.266 kg

DRUGS (6)
  1. PLAQUINELL [Concomitant]
     Indication: RHEUMATOID ARTHRITIS
  2. TENORMIN [Concomitant]
     Indication: HYPERTENSION
  3. CALAN [Concomitant]
     Indication: HYPERTENSION
  4. BIDEL [Concomitant]
     Indication: HYPERTENSION
  5. ENBREL [Concomitant]
     Indication: RHEUMATOID ARTHRITIS
     Dates: start: 20110801
  6. HUMIRA [Suspect]
     Indication: RHEUMATOID ARTHRITIS
     Route: 058
     Dates: start: 20080201, end: 20110801

REACTIONS (5)
  - MOBILITY DECREASED [None]
  - ARTHRALGIA [None]
  - PULMONARY FIBROSIS [None]
  - RHEUMATOID ARTHRITIS [None]
  - DRUG INEFFECTIVE [None]
